FAERS Safety Report 18791647 (Version 9)
Quarter: 2022Q4

REPORT INFORMATION
  Report Type: Report from Study
  Country: US (occurrence: None)
  Receive Date: 20210127
  Receipt Date: 20221226
  Transmission Date: 20230112
  Serious: Yes (Hospitalization)
  Sender: FDA-Public Use
  Company Number: US-ROCHE-2752120

PATIENT
  Age: 57 Year
  Sex: Female
  Weight: 56.2 kg

DRUGS (23)
  1. AUTOGENE CEVUMERAN [Suspect]
     Active Substance: AUTOGENE CEVUMERAN
     Indication: Oesophageal cancer metastatic
     Dosage: DATE OF MOST RECENT DOSE (25 MICROG) OF RO7198457 (RNA PERSONALISED CANCER VACCINE) PRIOR TO SAE: 09
     Route: 042
     Dates: start: 20180813
  2. ATEZOLIZUMAB [Suspect]
     Active Substance: ATEZOLIZUMAB
     Indication: Oesophageal cancer metastatic
     Dosage: DATE OF MOST RECENT DOSE (1200 MG) OF ATEZOLIZUMAB PRIOR TO SAE: 14/JAN/2021
     Route: 041
     Dates: start: 20200826
  3. SYNTHROID [Concomitant]
     Active Substance: LEVOTHYROXINE SODIUM
     Indication: Hypothyroidism
     Route: 048
     Dates: start: 2010
  4. ZOFRAN [Concomitant]
     Active Substance: ONDANSETRON HYDROCHLORIDE
     Indication: Nausea
     Route: 048
     Dates: start: 20150930
  5. INJECTAFER [Concomitant]
     Active Substance: FERRIC CARBOXYMALTOSE
     Route: 042
     Dates: start: 20180924
  6. LYRICA [Concomitant]
     Active Substance: PREGABALIN
     Indication: Arthralgia
     Route: 048
     Dates: start: 20190731
  7. RITALIN [Concomitant]
     Active Substance: METHYLPHENIDATE HYDROCHLORIDE
     Route: 048
     Dates: start: 20190315
  8. TORADOL [Concomitant]
     Active Substance: KETOROLAC TROMETHAMINE
     Route: 030
     Dates: start: 20190730
  9. DILAUDID [Concomitant]
     Active Substance: HYDROMORPHONE HYDROCHLORIDE
     Indication: Medical device pain
     Route: 048
     Dates: start: 20200401
  10. DILAUDID [Concomitant]
     Active Substance: HYDROMORPHONE HYDROCHLORIDE
     Indication: Hepatic pain
     Route: 048
     Dates: start: 20190827
  11. DILAUDID [Concomitant]
     Active Substance: HYDROMORPHONE HYDROCHLORIDE
     Indication: Cancer pain
  12. IRON [Concomitant]
     Active Substance: IRON
     Indication: Anaemia
     Route: 048
     Dates: start: 20190827
  13. MIRTAZAPINE [Concomitant]
     Active Substance: MIRTAZAPINE
     Indication: Decreased appetite
     Route: 048
     Dates: start: 20200121
  14. MIRTAZAPINE [Concomitant]
     Active Substance: MIRTAZAPINE
     Indication: Depression
  15. MIRTAZAPINE [Concomitant]
     Active Substance: MIRTAZAPINE
     Indication: Insomnia
  16. TIZANIDINE [Concomitant]
     Active Substance: TIZANIDINE
     Indication: Muscle spasms
     Route: 048
     Dates: start: 20200402
  17. NALOXONE [Concomitant]
     Active Substance: NALOXONE
     Dates: start: 20200409
  18. PREDNISONE [Concomitant]
     Active Substance: PREDNISONE
     Indication: Medical device pain
     Route: 048
     Dates: start: 20200401
  19. FLEET ENEMA [Concomitant]
     Active Substance: SODIUM PHOSPHATE, DIBASIC\SODIUM PHOSPHATE, MONOBASIC
     Indication: Constipation
     Dates: start: 20200711
  20. LEVOFLOXACIN [Concomitant]
     Active Substance: LEVOFLOXACIN
     Indication: White blood cell count increased
     Route: 042
     Dates: start: 20210114
  21. OXYGEN [Concomitant]
     Active Substance: OXYGEN
     Indication: Hypoxia
     Dosage: 2 OTHER
     Route: 055
     Dates: start: 20210114, end: 20210114
  22. OXYGEN [Concomitant]
     Active Substance: OXYGEN
     Indication: Tachycardia
     Dosage: 30 OTHER
     Route: 055
     Dates: start: 20210114, end: 20210115
  23. OXYGEN [Concomitant]
     Active Substance: OXYGEN
     Dosage: 2 OTHER
     Route: 055
     Dates: start: 20210115

REACTIONS (1)
  - Pneumonitis [Recovered/Resolved]

NARRATIVE: CASE EVENT DATE: 20210114
